FAERS Safety Report 7445288-8 (Version None)
Quarter: 2011Q2

REPORT INFORMATION
  Report Type: 
  Country: None (occurrence: None)
  Receive Date: 20110429
  Receipt Date: 20101207
  Transmission Date: 20111010
  Serious: No
  Sender: FDA-Public Use
  Company Number: US-BAYER-2010-009142

PATIENT
  Sex: Female

DRUGS (1)
  1. YAZ [Suspect]
     Dosage: UNK
     Route: 048
     Dates: start: 20101001, end: 20101001

REACTIONS (3)
  - VAGINAL HAEMORRHAGE [None]
  - DRUG ADMINISTRATION ERROR [None]
  - MENSTRUATION DELAYED [None]
